FAERS Safety Report 6012757-7 (Version None)
Quarter: 2008Q4

REPORT INFORMATION
  Report Type: 
  Country: None (occurrence: None)
  Receive Date: 20081217
  Receipt Date: 20081211
  Transmission Date: 20090506
  Serious: No
  Sender: FDA-Public Use
  Company Number: C-08-0095-W

PATIENT
  Age: 70 Year
  Sex: Female
  Weight: 127.0072 kg

DRUGS (3)
  1. LISINOPRIL [Suspect]
     Indication: HYPERTENSION
     Dosage: 20 MG ONCE DAILY, ORAL
     Route: 048
     Dates: start: 20081209, end: 20081210
  2. INSULIN [Concomitant]
  3. UNNAMED DIURETIC PILL [Concomitant]

REACTIONS (5)
  - CHEST DISCOMFORT [None]
  - DYSPNOEA [None]
  - FATIGUE [None]
  - FEELING ABNORMAL [None]
  - VISION BLURRED [None]
